FAERS Safety Report 9657360 (Version 3)
Quarter: 2013Q4

REPORT INFORMATION
  Report Type: Spontaneous
  Country: JP (occurrence: JP)
  Receive Date: 20131030
  Receipt Date: 20131203
  Transmission Date: 20140711
  Serious: Yes (Hospitalization)
  Sender: FDA-Public Use
  Company Number: JP-GLAXOSMITHKLINE-B0936795A

PATIENT
  Age: 78 Year
  Sex: Male

DRUGS (4)
  1. VALTREX [Suspect]
     Indication: HERPES ZOSTER
     Dosage: 1000MG THREE TIMES PER DAY
     Route: 048
     Dates: start: 20131023, end: 20131024
  2. CALTAN [Concomitant]
     Indication: HYPERPHOSPHATAEMIA
     Dosage: 1000MG THREE TIMES PER DAY
     Route: 048
  3. ALFAROL [Concomitant]
     Indication: HYPERPHOSPHATAEMIA
     Dosage: .25MCG PER DAY
     Route: 048
  4. METHYCOBAL [Concomitant]
     Indication: HERPES ZOSTER
     Dosage: 500MCG THREE TIMES PER DAY
     Route: 048

REACTIONS (3)
  - Altered state of consciousness [Recovered/Resolved]
  - Sinus tachycardia [Recovered/Resolved]
  - Nervous system disorder [Unknown]
